FAERS Safety Report 10269757 (Version 2)
Quarter: 2014Q3

REPORT INFORMATION
  Report Type: Spontaneous
  Country: JP (occurrence: JP)
  Receive Date: 20140701
  Receipt Date: 20140724
  Transmission Date: 20150326
  Serious: Yes (Death, Other)
  Sender: FDA-Public Use
  Company Number: JP-ELI_LILLY_AND_COMPANY-JP201406008458

PATIENT
  Age: 60 Year
  Sex: Male
  Weight: 67.8 kg

DRUGS (9)
  1. PANVITAN                           /00466101/ [Concomitant]
     Indication: PROPHYLAXIS
     Dosage: 1 G, UNK
     Route: 048
     Dates: start: 20140607, end: 20140628
  2. URSO                               /00465701/ [Concomitant]
     Dosage: 600 MG, UNK
     Route: 048
     Dates: start: 20130502, end: 20140621
  3. ALIMTA [Suspect]
     Active Substance: PEMETREXED DISODIUM
     Indication: LUNG ADENOCARCINOMA RECURRENT
     Dosage: 920 MG, OTHER
     Route: 042
     Dates: start: 20140618, end: 20140618
  4. FOIPAN [Concomitant]
     Active Substance: CAMOSTAT MESYLATE
     Dosage: 300 MG, UNK
     Route: 048
     Dates: start: 20051207, end: 20140621
  5. NAUZELIN [Concomitant]
     Active Substance: DOMPERIDONE
     Dosage: 30 MG, UNK
     Route: 048
     Dates: start: 20051001, end: 20140621
  6. NEXIUM [Concomitant]
     Active Substance: ESOMEPRAZOLE MAGNESIUM
     Dosage: 20 MG, UNK
     Route: 048
     Dates: start: 20130531, end: 20140628
  7. METHYCOBAL [Concomitant]
     Active Substance: METHYLCOBALAMIN
     Indication: PROPHYLAXIS
     Dosage: 1000 UG, UNK
     Route: 030
     Dates: start: 20140607, end: 20140607
  8. CODEINE PHOSPHATE [Concomitant]
     Active Substance: CODEINE PHOSPHATE
     Indication: COUGH
     Dosage: 80 MG, UNK
     Route: 048
     Dates: start: 20140508, end: 20140621
  9. CISPLATIN. [Suspect]
     Active Substance: CISPLATIN
     Indication: LUNG ADENOCARCINOMA RECURRENT
     Dosage: UNK
     Route: 042
     Dates: start: 20140618, end: 20140618

REACTIONS (2)
  - Pulmonary fibrosis [Fatal]
  - Platelet count decreased [Unknown]

NARRATIVE: CASE EVENT DATE: 20140620
